FAERS Safety Report 5588200-9 (Version None)
Quarter: 2008Q1

REPORT INFORMATION
  Report Type: 
  Country: None (occurrence: None)
  Receive Date: 20080109
  Receipt Date: 20080109
  Transmission Date: 20080703
  Serious: Yes (Other)
  Sender: FDA-Public Use
  Company Number: None

PATIENT
  Sex: Female
  Weight: 107.5025 kg

DRUGS (2)
  1. LEVAQUIN [Suspect]
     Indication: CHRONIC SINUSITIS
     Dosage: 500 MG.  ONCE A DAY  PO (THERAPY DATES: SPRING-SEPT. 2007)
     Route: 048
  2. LEVAQUIN [Suspect]
     Indication: CHRONIC SINUSITIS
     Dosage: 750 MG.  ONCE A DAY  PO (THERAPY DATES:  NOV/DEC 2007)
     Route: 048

REACTIONS (4)
  - ARTHROPATHY [None]
  - PAIN [None]
  - PAIN IN EXTREMITY [None]
  - TENDON INJURY [None]
